FAERS Safety Report 5005381-6 (Version None)
Quarter: 2006Q2

REPORT INFORMATION
  Report Type: 
  Country: None (occurrence: None)
  Receive Date: 20060515
  Receipt Date: 20060502
  Transmission Date: 20061013
  Serious: Yes (Other)
  Sender: FDA-Public Use
  Company Number: 2006050643

PATIENT
  Sex: Female
  Weight: 77.1115 kg

DRUGS (3)
  1. BEXTRA [Suspect]
     Indication: BLOOD CHOLESTEROL
     Dosage: 10 MG, 1 IN 1 D, ORAL
     Route: 048
     Dates: start: 20041201
  2. AMITRIPTYLINE HCL [Concomitant]
  3. VICODIN [Concomitant]

REACTIONS (7)
  - ARTHRALGIA [None]
  - FALL [None]
  - HYPERHIDROSIS [None]
  - MYOCARDIAL INFARCTION [None]
  - NAUSEA [None]
  - PAIN IN EXTREMITY [None]
  - PALPITATIONS [None]
